FAERS Safety Report 22311399 (Version 1)
Quarter: 2023Q2

REPORT INFORMATION
  Report Type: Spontaneous
  Country: IT (occurrence: IT)
  Receive Date: 20230511
  Receipt Date: 20230511
  Transmission Date: 20230721
  Serious: Yes (Other)
  Sender: FDA-Public Use
  Company Number: None

PATIENT
  Age: 74 Year
  Sex: Male

DRUGS (3)
  1. KEYTRUDA [Suspect]
     Active Substance: PEMBROLIZUMAB
     Dosage: 200 MILLIGRAM, 21 DAYS
     Route: 042
     Dates: start: 20220420, end: 20220601
  2. CARBOPLATIN [Suspect]
     Active Substance: CARBOPLATIN
     Dosage: 430 MG/ 21 DAYS
     Route: 042
     Dates: start: 20220420, end: 20220601
  3. PACLITAXEL [Suspect]
     Active Substance: PACLITAXEL
     Dosage: 350 MILLIGRAM, 21 DAYS
     Route: 042
     Dates: start: 20220420, end: 20220601

REACTIONS (1)
  - Thrombocytopenia [Recovered/Resolved]

NARRATIVE: CASE EVENT DATE: 20220622
